FAERS Safety Report 12746256 (Version 2)
Quarter: 2016Q4

REPORT INFORMATION
  Report Type: Spontaneous
  Country: DE (occurrence: DE)
  Receive Date: 20160915
  Receipt Date: 20161018
  Transmission Date: 20170207
  Serious: Yes (Disabling)
  Sender: FDA-Public Use
  Company Number: DE-AMGEN-DEUSP2016123009

PATIENT
  Age: 77 Year
  Sex: Female
  Weight: 61 kg

DRUGS (1)
  1. PROLIA [Suspect]
     Active Substance: DENOSUMAB
     Indication: OSTEOPOROSIS
     Dosage: UNK
     Route: 065
     Dates: start: 2014, end: 2016

REACTIONS (1)
  - Tooth loss [Recovering/Resolving]

NARRATIVE: CASE EVENT DATE: 201601
